FAERS Safety Report 13784452 (Version 4)
Quarter: 2019Q1

REPORT INFORMATION
  Report Type: Spontaneous
  Country: US (occurrence: US)
  Receive Date: 20170724
  Receipt Date: 20190303
  Transmission Date: 20190417
  Serious: No
  Sender: FDA-Public Use
  Company Number: US-IMPAX LABORATORIES, INC-2017-IPXL-01078

PATIENT
  Age: 70 Year
  Sex: Male
  Weight: 90 kg

DRUGS (6)
  1. CLARITIN [Concomitant]
     Active Substance: LORATADINE
     Indication: SINUSITIS
     Dosage: UNK
     Route: 065
  2. RAPAFLO [Concomitant]
     Active Substance: SILODOSIN
     Indication: BLADDER DISORDER
     Dosage: UNK
     Route: 065
  3. RYTARY [Suspect]
     Active Substance: CARBIDOPA\LEVODOPA
     Indication: PARKINSON^S DISEASE
     Dosage: 36.25/145 MG, THREE CAPSULES FOUR TIMES DAILY AT 7:30 AM, 12:30 PM, 5:30 PM, AND AT 10:30 PM
     Route: 048
     Dates: start: 20170330
  4. RYTARY [Suspect]
     Active Substance: CARBIDOPA\LEVODOPA
     Dosage: 36.25/145 MG, 12 TIMES DAILY
     Route: 048
     Dates: start: 2017
  5. CELEBREX [Concomitant]
     Active Substance: CELECOXIB
     Indication: BACK PAIN
     Dosage: UNK
     Route: 065
  6. CELEBREX [Concomitant]
     Active Substance: CELECOXIB
     Indication: PAIN

REACTIONS (1)
  - Therapeutic response shortened [Not Recovered/Not Resolved]

NARRATIVE: CASE EVENT DATE: 20170409
